FAERS Safety Report 6714094-1 (Version None)
Quarter: 2010Q2

REPORT INFORMATION
  Report Type: 
  Country: None (occurrence: None)
  Receive Date: 20100506
  Receipt Date: 20100427
  Transmission Date: 20101027
  Serious: Yes (Other)
  Sender: FDA-Public Use
  Company Number: CH-BAXTER-2010BH012315

PATIENT
  Age: 11 Year
  Sex: Male

DRUGS (4)
  1. IFOSFAMIDE [Suspect]
     Indication: PINEAL GERMINOMA
     Route: 065
  2. ETOPOSIDE [Suspect]
     Indication: PINEAL GERMINOMA
     Route: 065
  3. CISPLATIN [Suspect]
     Indication: PINEAL GERMINOMA
  4. RADIOTHERAPY [Suspect]
     Indication: PINEAL GERMINOMA
     Route: 065

REACTIONS (3)
  - ATTENTION DEFICIT/HYPERACTIVITY DISORDER [None]
  - GROWTH HORMONE DEFICIENCY [None]
  - MENTAL IMPAIRMENT [None]
